FAERS Safety Report 9890403 (Version 1)
Quarter: 2014Q1

REPORT INFORMATION
  Report Type: Spontaneous
  Country: US (occurrence: None)
  Receive Date: 20140210
  Receipt Date: 20140210
  Transmission Date: 20141002
  Serious: Yes (Death)
  Sender: FDA-Public Use
  Company Number: None

PATIENT
  Age: 55 Year
  Sex: Male

DRUGS (1)
  1. CLOZAPIN [Suspect]
     Indication: SCHIZOAFFECTIVE DISORDER
     Dosage: 100MG AND 200MG?BID?ORAL?MONTHS
     Route: 048

REACTIONS (4)
  - Sudden death [None]
  - Convulsion [None]
  - Fall [None]
  - Mental disorder [None]
